FAERS Safety Report 9752692 (Version 1)
Quarter: 2013Q4

REPORT INFORMATION
  Report Type: Spontaneous
  Country: US (occurrence: None)
  Receive Date: 20131212
  Receipt Date: 20131212
  Transmission Date: 20140711
  Serious: No
  Sender: FDA-Public Use
  Company Number: None

PATIENT
  Age: 76 Year
  Sex: Female

DRUGS (3)
  1. ARIMIDEX [Suspect]
     Indication: BREAST CANCER
     Route: 048
     Dates: start: 20130601, end: 20131015
  2. AMLODIPINE [Concomitant]
  3. HCTZ [Concomitant]

REACTIONS (3)
  - Pain [None]
  - Myalgia [None]
  - Arthralgia [None]
